FAERS Safety Report 16414064 (Version 1)
Quarter: 2019Q3

REPORT INFORMATION
  Report Type: Spontaneous
  Country: US (occurrence: US)
  Receive Date: 20190609
  Receipt Date: 20190609
  Transmission Date: 20191004
  Serious: Yes (Death, Hospitalization)
  Sender: FDA-Public Use
  Company Number: None

PATIENT
  Age: 62 Year
  Sex: Male
  Weight: 108 kg

DRUGS (7)
  1. OMEPRAZOLE. [Concomitant]
     Active Substance: OMEPRAZOLE
  2. OPDIVO [Suspect]
     Active Substance: NIVOLUMAB
     Indication: MALIGNANT MELANOMA
     Dosage: ?          OTHER FREQUENCY:ONE EVERY 2 WEEKS;?
     Route: 042
     Dates: start: 20180314, end: 20180329
  3. WARFARIN [Concomitant]
     Active Substance: WARFARIN
  4. ALLOPURINOL. [Concomitant]
     Active Substance: ALLOPURINOL
  5. DIGOXIN. [Concomitant]
     Active Substance: DIGOXIN
  6. ROSUVASTATIN. [Concomitant]
     Active Substance: ROSUVASTATIN
  7. LISINOPRIL. [Concomitant]
     Active Substance: LISINOPRIL

REACTIONS (7)
  - Eyelid ptosis [None]
  - Myocarditis [None]
  - Throat tightness [None]
  - Respiratory failure [None]
  - Rhabdomyolysis [None]
  - Myasthenia gravis [None]
  - Diplopia [None]

NARRATIVE: CASE EVENT DATE: 20180314
